FAERS Safety Report 9580662 (Version 3)
Quarter: 2013Q4

REPORT INFORMATION
  Report Type: Spontaneous
  Country: US (occurrence: US)
  Receive Date: 20131002
  Receipt Date: 20131205
  Transmission Date: 20140711
  Serious: Yes (Life-Threatening, Other)
  Sender: FDA-Public Use
  Company Number: US-COVIDIEN/TYCO HEALTHCARE/MALLINCKRODT-T201304499

PATIENT
  Age: 23 Year
  Sex: Male

DRUGS (3)
  1. METHADOSE [Suspect]
     Indication: PRODUCT USED FOR UNKNOWN INDICATION
     Dosage: 90 MG, SINGLE, ON THE 6TH DAY
     Route: 048
  2. METHADOSE [Suspect]
     Dosage: 30 MG, QD, FOR 5 DAYS
     Route: 048
  3. NALTREXONE [Suspect]
     Indication: SUBSTANCE ABUSE
     Dosage: 50 MG, QD, FOR 3 MONTHS
     Route: 065

REACTIONS (3)
  - Overdose [Recovered/Resolved]
  - Respiratory arrest [Recovered/Resolved]
  - Deafness neurosensory [Not Recovered/Not Resolved]
